FAERS Safety Report 6433837-8 (Version None)
Quarter: 2009Q4

REPORT INFORMATION
  Report Type: 
  Country: None (occurrence: None)
  Receive Date: 20091106
  Receipt Date: 20091106
  Transmission Date: 20100525
  Serious: Yes (Hospitalization)
  Sender: FDA-Public Use
  Company Number: None

PATIENT
  Age: 83 Year
  Sex: Male
  Weight: 42.64 kg

DRUGS (1)
  1. SODIUM IODIDE I 123 [Suspect]
     Indication: ULTRASOUND THYROID
     Dosage: 378 ONCE PO
     Route: 048
     Dates: start: 20090401, end: 20090401

REACTIONS (3)
  - DIZZINESS [None]
  - HYPOTENSION [None]
  - TROPONIN INCREASED [None]
